FAERS Safety Report 19372875 (Version 1)
Quarter: 2021Q2

REPORT INFORMATION
  Report Type: Spontaneous
  Country: US (occurrence: US)
  Receive Date: 20210604
  Receipt Date: 20210604
  Transmission Date: 20210717
  Serious: Yes (Life-Threatening)
  Sender: FDA-Public Use
  Company Number: None

PATIENT
  Age: 68 Year
  Sex: Female
  Weight: 76.5 kg

DRUGS (4)
  1. PRALUENT [Concomitant]
     Active Substance: ALIROCUMAB
  2. SYNTHROID [Concomitant]
     Active Substance: LEVOTHYROXINE SODIUM
  3. LEVEMIR [Concomitant]
     Active Substance: INSULIN DETEMIR
  4. ALOGLIPTIN. [Suspect]
     Active Substance: ALOGLIPTIN
     Indication: DIABETES MELLITUS
     Dosage: ?          QUANTITY:1 TABLET(S);?
     Route: 048

REACTIONS (4)
  - Depression [None]
  - Suicidal ideation [None]
  - Rhinorrhoea [None]
  - Personality change [None]

NARRATIVE: CASE EVENT DATE: 20210208
